FAERS Safety Report 9994109 (Version 2)
Quarter: 2014Q1

REPORT INFORMATION
  Report Type: Spontaneous
  Country: US (occurrence: US)
  Receive Date: 20140310
  Receipt Date: 20140310
  Transmission Date: 20141002
  Serious: No
  Sender: FDA-Public Use
  Company Number: US-AMGEN-USASP2013087481

PATIENT
  Age: 75 Year
  Sex: Male
  Weight: 66.1 kg

DRUGS (10)
  1. SENSIPAR [Suspect]
     Indication: HYPERPARATHYROIDISM SECONDARY
     Dosage: 30 MG, QD
     Route: 048
     Dates: start: 200905
  2. FLONASE                            /00908302/ [Concomitant]
     Dosage: UNK
     Route: 045
  3. LASIX                              /00032601/ [Concomitant]
     Dosage: UNK
     Route: 048
  4. PROCARDIA                          /00340701/ [Concomitant]
     Dosage: UNK
     Route: 048
  5. ZESTRIL [Concomitant]
     Dosage: UNK
     Route: 048
  6. CATAPRESS [Concomitant]
     Dosage: UNK
     Route: 048
  7. COZAAR COMP [Concomitant]
     Dosage: UNK
     Route: 048
  8. NEPHRO-VITE                        /01801401/ [Concomitant]
     Dosage: UNK
     Route: 048
  9. EPOGEN [Concomitant]
     Indication: ANAEMIA
     Dosage: 4.4K  UNK, QWK
     Route: 058
  10. EPOGEN [Concomitant]
     Indication: RENAL FAILURE CHRONIC

REACTIONS (2)
  - Adverse event [Recovered/Resolved]
  - Decreased appetite [Not Recovered/Not Resolved]
